FAERS Safety Report 6279094-7 (Version None)
Quarter: 2009Q3

REPORT INFORMATION
  Report Type: 
  Country: None (occurrence: None)
  Receive Date: 20090723
  Receipt Date: 20080603
  Transmission Date: 20100115
  Serious: No
  Sender: FDA-Public Use
  Company Number: US-AMGEN-KDL267577

PATIENT
  Sex: Male
  Weight: 74.9 kg

DRUGS (5)
  1. PROCRIT [Suspect]
     Indication: RENAL FAILURE CHRONIC
     Route: 058
     Dates: start: 20070525
  2. UNSPECIFIED MEDICATION [Concomitant]
  3. AZATHIOPRINE [Concomitant]
     Dates: start: 20050329
  4. PREDNISONE TAB [Concomitant]
     Dates: start: 20030321
  5. NEORAL [Concomitant]
     Dates: start: 20020101

REACTIONS (1)
  - THERAPEUTIC RESPONSE DECREASED [None]
